FAERS Safety Report 8647442 (Version 2)
Quarter: 2012Q4

REPORT INFORMATION
  Report Type: Report from Study
  Country: JP (occurrence: JP)
  Receive Date: 20120703
  Receipt Date: 20121004
  Transmission Date: 20130627
  Serious: Yes (Death, Hospitalization, Other)
  Sender: FDA-Public Use
  Company Number: JP-ASTELLAS-2012US005868

PATIENT
  Age: 41 Year
  Sex: Male

DRUGS (15)
  1. ERLOTINIB TABLET [Suspect]
     Indication: ADENOCARCINOMA PANCREAS
     Dosage: 100 mg, UID/QD
     Route: 048
     Dates: start: 20120220, end: 20120416
  2. GEMCITABINE                        /01215702/ [Suspect]
     Indication: ADENOCARCINOMA PANCREAS
     Dosage: 1000 mg/m2, Unknown/D
     Route: 041
     Dates: start: 20120220, end: 20120220
  3. GEMCITABINE                        /01215702/ [Suspect]
     Dosage: 1000 mg/m2, Unknown/D
     Route: 041
     Dates: start: 20120227, end: 20120227
  4. GEMCITABINE                        /01215702/ [Suspect]
     Dosage: 1000 mg/m2, Unknown/D
     Route: 041
     Dates: start: 20120305, end: 20120305
  5. GEMCITABINE                        /01215702/ [Suspect]
     Dosage: 1000 mg/m2, Unknown/D
     Route: 041
     Dates: start: 20120319, end: 20120319
  6. GEMCITABINE                        /01215702/ [Suspect]
     Dosage: 1000 mg/m2, Unknown/D
     Route: 041
     Dates: start: 20120326, end: 20120326
  7. GEMCITABINE                        /01215702/ [Suspect]
     Dosage: 1000 mg/m2, Unknown/D
     Route: 041
     Dates: start: 20120402, end: 20120402
  8. OXYCONTIN [Suspect]
     Indication: ADENOCARCINOMA PANCREAS
     Dosage: 10 mg, Unknown/D
     Route: 048
     Dates: end: 20120304
  9. OXYCONTIN [Suspect]
     Dosage: 20 mg, Unknown/D
     Route: 048
     Dates: start: 20120405
  10. LOXOPROFEN                         /00890702/ [Concomitant]
     Indication: ADENOCARCINOMA PANCREAS
     Dosage: 180 mg, Unknown/D
     Route: 048
  11. TAKEPRON [Concomitant]
     Indication: PROPHYLAXIS
     Dosage: 15 mg, Unknown/D
     Route: 048
  12. OXINORM                            /00045603/ [Concomitant]
     Indication: ADENOCARCINOMA PANCREAS
     Dosage: 2.5 mg, Unknown/D
     Route: 048
     Dates: start: 20120304
  13. OXINORM                            /00045603/ [Concomitant]
     Dosage: 5 mg, Unknown/D
     Route: 048
     Dates: start: 20120304
  14. GRANISETRON                        /01178102/ [Concomitant]
     Indication: PROPHYLAXIS
     Dosage: 1 mg, Unknown/D
     Route: 042
  15. DEXART [Concomitant]
     Indication: PROPHYLAXIS
     Dosage: 6.6 mg, Unknown/D
     Route: 042

REACTIONS (20)
  - Blood bilirubin increased [Recovering/Resolving]
  - Malignant neoplasm progression [Unknown]
  - Pyrexia [Recovered/Resolved]
  - Constipation [Recovered/Resolved]
  - Rash [Recovered/Resolved]
  - Pyrexia [Recovered/Resolved]
  - Diarrhoea [Recovered/Resolved]
  - Decreased appetite [Recovering/Resolving]
  - Nausea [Recovering/Resolving]
  - Fatigue [Recovering/Resolving]
  - Pyrexia [Recovered/Resolved]
  - Pyrexia [Not Recovered/Not Resolved]
  - Death [Fatal]
  - Hypoalbuminaemia [Unknown]
  - Hypoalbuminaemia [Not Recovered/Not Resolved]
  - Hypoalbuminaemia [Recovering/Resolving]
  - Hyperglycaemia [Unknown]
  - Bile duct stenosis [Unknown]
  - Hepatic function abnormal [Recovering/Resolving]
  - Blood alkaline phosphatase increased [Recovering/Resolving]
